FAERS Safety Report 18429134 (Version 1)
Quarter: 2020Q4

REPORT INFORMATION
  Report Type: Spontaneous
  Country: US (occurrence: US)
  Receive Date: 20201026
  Receipt Date: 20201026
  Transmission Date: 20210114
  Serious: Yes (Other)
  Sender: FDA-Public Use
  Company Number: US-IGSA-BIG0011705

PATIENT
  Age: 62 Year
  Sex: Female
  Weight: 54 kg

DRUGS (2)
  1. GAMUNEX-C [Suspect]
     Active Substance: HUMAN IMMUNOGLOBULIN G
     Indication: IMMUNODEFICIENCY COMMON VARIABLE
     Dosage: 35 GRAM, Q.4WK.
     Route: 041
     Dates: start: 20200903, end: 20200903
  2. GAMUNEX-C [Suspect]
     Active Substance: HUMAN IMMUNOGLOBULIN G
     Dosage: 35 GRAM, Q.4WK.
     Route: 041
     Dates: start: 20170101

REACTIONS (2)
  - Pruritus [Unknown]
  - Chest discomfort [Unknown]

NARRATIVE: CASE EVENT DATE: 20200903
